FAERS Safety Report 5051384-5 (Version None)
Quarter: 2006Q3

REPORT INFORMATION
  Report Type: 
  Country: None (occurrence: None)
  Receive Date: 20060714
  Receipt Date: 20060705
  Transmission Date: 20061208
  Serious: Yes (Other)
  Sender: FDA-Public Use
  Company Number: SE-ABBOTT-06P-150-0337869-00

PATIENT
  Sex: Female

DRUGS (2)
  1. VALPROIC ACID [Suspect]
     Indication: CONVULSION PROPHYLAXIS
     Dosage: NOT REPORTED
  2. VALPROIC ACID [Suspect]

REACTIONS (1)
  - STATUS EPILEPTICUS [None]
